FAERS Safety Report 16842175 (Version 1)
Quarter: 2019Q3

REPORT INFORMATION
  Report Type: Report from Study
  Country: None (occurrence: US)
  Receive Date: 20190923
  Receipt Date: 20190923
  Transmission Date: 20191005
  Serious: Yes (Hospitalization, Other)
  Sender: FDA-Public Use
  Company Number: US-ABBVIE-19K-163-2931346-00

PATIENT
  Sex: Female

DRUGS (1)
  1. ORILISSA [Suspect]
     Active Substance: ELAGOLIX SODIUM
     Indication: PRODUCT USED FOR UNKNOWN INDICATION
     Route: 048

REACTIONS (7)
  - Headache [Unknown]
  - Fungal infection [Unknown]
  - Diarrhoea [Unknown]
  - Ulcer haemorrhage [Unknown]
  - Surgery [Unknown]
  - Device allergy [Unknown]
  - Abdominal pain upper [Unknown]
